FAERS Safety Report 6329978-6 (Version None)
Quarter: 2009Q3

REPORT INFORMATION
  Report Type: 
  Country: None (occurrence: None)
  Receive Date: 20090825
  Receipt Date: 20090810
  Transmission Date: 20100115
  Serious: Yes (Life-Threatening, Hospitalization)
  Sender: FDA-Public Use
  Company Number: 2009002152

PATIENT
  Age: 50 Year
  Sex: Female

DRUGS (4)
  1. ERLOTINIB HYDROCHLORIDE [Suspect]
     Indication: NON-SMALL CELL LUNG CANCER
     Dosage: (150 MG, QD), ORAL
     Route: 048
     Dates: start: 20090303
  2. DELTAJONIN [Concomitant]
  3. AMINOMIX (AMINOMIX) [Concomitant]
  4. MS I (MORPHINE SULFATE) [Concomitant]

REACTIONS (3)
  - DISEASE PROGRESSION [None]
  - NON-SMALL CELL LUNG CANCER [None]
  - THROMBOCYTOPENIA [None]
